FAERS Safety Report 6579166-3 (Version None)
Quarter: 2010Q1

REPORT INFORMATION
  Report Type: 
  Country: None (occurrence: None)
  Receive Date: 20100212
  Receipt Date: 20100202
  Transmission Date: 20100710
  Serious: Yes (Hospitalization)
  Sender: FDA-Public Use
  Company Number: PHEH2010US01952

PATIENT

DRUGS (1)
  1. EXJADE [Suspect]
     Dosage: 1250 MG, QD
     Route: 048

REACTIONS (1)
  - HAEMOGLOBIN DECREASED [None]
